FAERS Safety Report 19888929 (Version 1)
Quarter: 2021Q3

REPORT INFORMATION
  Report Type: Spontaneous
  Country: US (occurrence: US)
  Receive Date: 20210928
  Receipt Date: 20210928
  Transmission Date: 20211014
  Serious: Yes (Hospitalization)
  Sender: FDA-Public Use
  Company Number: None

PATIENT
  Age: 30 Year
  Sex: Female

DRUGS (1)
  1. DIMETHYL FUMARATE [Suspect]
     Active Substance: DIMETHYL FUMARATE
     Indication: MULTIPLE SCLEROSIS
     Route: 048
     Dates: start: 20210727

REACTIONS (13)
  - Diarrhoea [None]
  - Constipation [None]
  - Vomiting [None]
  - Dizziness [None]
  - Fatigue [None]
  - Alopecia [None]
  - Fall [None]
  - Skin disorder [None]
  - Abdominal pain [None]
  - Nausea [None]
  - Back pain [None]
  - Flushing [None]
  - Pruritus [None]

NARRATIVE: CASE EVENT DATE: 20210824
